FAERS Safety Report 7281606 (Version 5)
Quarter: 2012Q4

REPORT INFORMATION
  Report Type: 
  Country: US (occurrence: US)
  Receive Date: 20100217
  Receipt Date: 20121101
  Transmission Date: 20130627
  Serious: Yes (Hospitalization, Other)
  Sender: FDA-Public Use
  Company Number: US-ELI_LILLY_AND_COMPANY-US201002004009

PATIENT
  Age: 46 Year
  Sex: Female
  Weight: 90.7 kg

DRUGS (16)
  1. BYETTA [Suspect]
     Indication: DIABETES MELLITUS
     Dosage: 5 ug, bid
     Route: 058
     Dates: start: 200712
  2. BYETTA [Suspect]
     Dosage: 10 ug, bid
     Route: 058
     Dates: start: 200801
  3. BYETTA [Suspect]
     Dosage: UNK, unknown
     Dates: start: 20090801, end: 20100501
  4. LANTUS [Concomitant]
     Indication: DIABETES MELLITUS
     Dosage: UNK, UNK
     Dates: start: 20000101
  5. LOVASTATIN [Concomitant]
     Indication: LIPIDS
     Dosage: UNK, UNK
     Dates: start: 20000101
  6. METFORMIN [Concomitant]
     Indication: DIABETES MELLITUS
     Dates: start: 20000101
  7. TYLENOL                                 /SCH/ [Concomitant]
     Indication: HEADACHE
     Dates: start: 20000101
  8. HYDROCHLOROTHIAZID [Concomitant]
     Indication: FLUID RETENTION
     Dates: start: 20000101
  9. GLYBURIDE [Concomitant]
     Indication: DIABETES MELLITUS
     Dates: start: 20000101
  10. LOVENOX [Concomitant]
     Dosage: 40 mg, qd
  11. NITROGLYCERIN [Concomitant]
     Dosage: 0.4 mg, prn
  12. PROTONIX [Concomitant]
  13. GLUCOVANCE [Concomitant]
  14. SKELAXIN [Concomitant]
     Dosage: 800 mg, tid
     Route: 048
  15. ACTOS [Concomitant]
     Dosage: UNK, unknown
  16. ACTOS [Concomitant]
     Dosage: 15 mg, qd

REACTIONS (4)
  - Pancreatitis [Recovered/Resolved]
  - Chest pain [Unknown]
  - Off label use [Unknown]
  - Dyspnoea [Unknown]
